FAERS Safety Report 23507230 (Version 1)
Quarter: 2024Q1

REPORT INFORMATION
  Report Type: Spontaneous
  Country: US (occurrence: None)
  Receive Date: 20240209
  Receipt Date: 20240209
  Transmission Date: 20240410
  Serious: Yes (Hospitalization)
  Sender: FDA-Public Use
  Company Number: None

PATIENT
  Age: 65 Year
  Sex: Male
  Weight: 84.4 kg

DRUGS (2)
  1. SPRYCEL [Suspect]
     Active Substance: DASATINIB
     Dates: end: 20240205
  2. PREDNISONE [Suspect]
     Active Substance: PREDNISONE
     Dates: end: 20240129

REACTIONS (2)
  - Hypoxia [None]
  - Pleural effusion [None]

NARRATIVE: CASE EVENT DATE: 20240207
